FAERS Safety Report 10008960 (Version 1)
Quarter: 2014Q1

REPORT INFORMATION
  Report Type: Spontaneous
  Country: US (occurrence: US)
  Receive Date: 20140313
  Receipt Date: 20140313
  Transmission Date: 20141002
  Serious: Yes (Other)
  Sender: FDA-Public Use
  Company Number: US-INCYTE CORPORATION-2012IN001179

PATIENT
  Age: 81 Year
  Sex: Female

DRUGS (6)
  1. JAKAFI [Suspect]
     Indication: MYELOFIBROSIS
     Dosage: 10 MG, BID
     Route: 048
  2. ASPIRIN [Concomitant]
     Dosage: 81 MG, QD
  3. METOPROLOL [Concomitant]
     Dosage: 25 MG, BID
  4. LISINOPRIL [Concomitant]
     Dosage: 5 MG, BID
  5. POTASSIUM [Concomitant]
     Dosage: 20 MEQ, QD
  6. FUROSEMIDE [Concomitant]
     Dosage: 20 MG, QD

REACTIONS (1)
  - Haemoglobin decreased [Unknown]
